FAERS Safety Report 24245016 (Version 1)
Quarter: 2024Q3

REPORT INFORMATION
  Report Type: Report from Study
  Country: US (occurrence: US)
  Receive Date: 20240823
  Receipt Date: 20240823
  Transmission Date: 20241016
  Serious: Yes (Other)
  Sender: GILEAD
  Company Number: US-GILEAD-2024-0680442

PATIENT
  Age: 65 Year
  Sex: Female

DRUGS (1)
  1. SACITUZUMAB GOVITECAN-HZIY [Suspect]
     Active Substance: SACITUZUMAB GOVITECAN-HZIY
     Indication: Product used for unknown indication
     Dosage: 800 MG, ON DAYS 1 AND 8 OF 21-DAY CONTINUOUS TREATMENT CYCLE
     Route: 042
     Dates: start: 20240422, end: 20240711

REACTIONS (1)
  - Disease progression [Unknown]
